FAERS Safety Report 9565196 (Version 3)
Quarter: 2013Q4

REPORT INFORMATION
  Report Type: Report from Study
  Country: DE (occurrence: DE)
  Receive Date: 20130930
  Receipt Date: 20131003
  Transmission Date: 20140711
  Serious: Yes (Other)
  Sender: FDA-Public Use
  Company Number: DE-PFIZER INC-2013278558

PATIENT
  Sex: 0

DRUGS (4)
  1. AMIODARONE HCL [Suspect]
     Indication: ATRIAL FIBRILLATION
     Dosage: UNK
     Route: 065
  2. OMEPRAZOLE [Concomitant]
     Dosage: UNK
     Dates: start: 201209
  3. METOPROLOL [Concomitant]
     Dosage: UNK
     Dates: start: 201305
  4. XARELTO [Concomitant]
     Dosage: UNK
     Dates: start: 201302

REACTIONS (1)
  - Hyperthyroidism [Recovered/Resolved]
